FAERS Safety Report 23347350 (Version 1)
Quarter: 2023Q4

REPORT INFORMATION
  Report Type: Report from Study
  Country: CA (occurrence: CA)
  Receive Date: 20231228
  Receipt Date: 20231228
  Transmission Date: 20240109
  Serious: Yes (Other)
  Sender: FDA-Public Use
  Company Number: CA-BIOGEN-2020BI00825550

PATIENT
  Age: 44 Year
  Sex: Female

DRUGS (4)
  1. TECFIDERA [Suspect]
     Active Substance: DIMETHYL FUMARATE
     Indication: Relapsing-remitting multiple sclerosis
     Route: 050
     Dates: start: 20150116, end: 20150122
  2. TECFIDERA [Suspect]
     Active Substance: DIMETHYL FUMARATE
     Route: 050
     Dates: start: 20150123, end: 20150129
  3. TECFIDERA [Suspect]
     Active Substance: DIMETHYL FUMARATE
     Dosage: 120 MILLIGRAMS IN THE MORNING AND 240 MILLIGRAMS IN THE EVENING
     Route: 050
     Dates: start: 20150130, end: 20150205
  4. TECFIDERA [Suspect]
     Active Substance: DIMETHYL FUMARATE
     Dosage: MAINTENANCE DOSE
     Route: 050
     Dates: start: 20150206

REACTIONS (16)
  - Prolactin-producing pituitary tumour [Unknown]
  - Accidental overdose [Recovered/Resolved]
  - Hypoacusis [Unknown]
  - Dizziness [Unknown]
  - Presyncope [Unknown]
  - Palpitations [Unknown]
  - Anxiety [Unknown]
  - Fungal infection [Unknown]
  - Hormone level abnormal [Unknown]
  - Menopausal symptoms [Unknown]
  - Menstruation irregular [Unknown]
  - Rash pruritic [Unknown]
  - Burning sensation [Unknown]
  - Pruritus [Unknown]
  - Flushing [Unknown]
  - Hot flush [Recovered/Resolved]

NARRATIVE: CASE EVENT DATE: 20190101
